FAERS Safety Report 15050313 (Version 1)
Quarter: 2018Q2

REPORT INFORMATION
  Report Type: Spontaneous
  Country: FR (occurrence: FR)
  Receive Date: 20180622
  Receipt Date: 20180622
  Transmission Date: 20180711
  Serious: Yes (Death, Hospitalization)
  Sender: FDA-Public Use
  Company Number: FR-MYLANLABS-2013SP006811

PATIENT
  Age: 50 Year
  Sex: Female
  Weight: 57 kg

DRUGS (5)
  1. FLUOROURACIL. [Suspect]
     Active Substance: FLUOROURACIL
     Indication: COLON CANCER
     Dosage: 400 MG/M2, UNK
     Route: 040
     Dates: start: 20130910, end: 20130910
  2. OXALIPLATIN. [Suspect]
     Active Substance: OXALIPLATIN
     Indication: COLON CANCER
     Dosage: 85 MG/M2, Q2H
     Route: 041
     Dates: start: 20130910, end: 20130910
  3. FLUOROURACIL. [Suspect]
     Active Substance: FLUOROURACIL
     Dosage: 3000 MG/M2, UNK
     Dates: end: 20130912
  4. FLUOROURACIL. [Suspect]
     Active Substance: FLUOROURACIL
     Dosage: 4800 MG, UNK
     Route: 041
  5. FLUOROURACIL. [Suspect]
     Active Substance: FLUOROURACIL
     Dosage: 4800 MG, UNK
     Route: 041

REACTIONS (7)
  - Dyspnoea [Fatal]
  - Malaise [Unknown]
  - Nausea [Unknown]
  - Stress cardiomyopathy [Fatal]
  - Acute coronary syndrome [Fatal]
  - Acute pulmonary oedema [Fatal]
  - Chest pain [Fatal]

NARRATIVE: CASE EVENT DATE: 20130913
